FAERS Safety Report 8812270 (Version 1)
Quarter: 2012Q4

REPORT INFORMATION
  Report Type: 
  Country: CH (occurrence: CH)
  Receive Date: 20120927
  Receipt Date: 20120927
  Transmission Date: 20130627
  Serious: Yes (Hospitalization, Other)
  Sender: FDA-Public Use
  Company Number: CH-BAYER-2012-097274

PATIENT
  Age: 78 Year
  Sex: Male

DRUGS (5)
  1. CIPROFLOXACIN [Suspect]
     Indication: URINARY TRACT INFECTION
  2. SULFAMETHOXAZOLE AND TRIMETHOPRIM [Suspect]
     Indication: URINARY TRACT INFECTION
  3. OCTREOTIDE [Suspect]
     Indication: ACROMEGALY
     Dosage: 10 mg, Q6WK
  4. PENICILLIN [Suspect]
     Indication: URINARY TRACT INFECTION BACTERIAL
  5. CEPHALOSPORINS AND RELATED SUBSTANCES [Suspect]
     Indication: URINARY TRACT INFECTION BACTERIAL

REACTIONS (4)
  - Hyperoxaluria [Recovering/Resolving]
  - Crystal nephropathy [Recovering/Resolving]
  - Kidney fibrosis [Recovering/Resolving]
  - Renal failure acute [Recovering/Resolving]
